FAERS Safety Report 16480329 (Version 5)
Quarter: 2020Q2

REPORT INFORMATION
  Report Type: Spontaneous
  Country: US (occurrence: US)
  Receive Date: 20190626
  Receipt Date: 20200511
  Transmission Date: 20200713
  Serious: No
  Sender: FDA-Public Use
  Company Number: US-PFIZER INC-2019272139

PATIENT
  Age: 48 Year
  Sex: Female

DRUGS (26)
  1. AMLODIPINE BESYLATE. [Concomitant]
     Active Substance: AMLODIPINE BESYLATE
     Dosage: 5 MG, UNK
     Dates: end: 20191121
  2. VITAMIN D3 (OTC) [Concomitant]
     Dosage: 50 UG, UNK
  3. MECLIZINE [Concomitant]
     Active Substance: MECLIZINE HYDROCHLORIDE
     Dosage: 25 MG, UNK
  4. FISH OIL (OTC) [Concomitant]
     Dosage: 1200 MG, UNK
  5. MILK THISTLE (OTC) [Concomitant]
     Dosage: 175 MG, UNK
  6. ADRIAMYCIN [Concomitant]
     Active Substance: DOXORUBICIN HYDROCHLORIDE
     Indication: CHEMOTHERAPY
     Dosage: UNK
  7. OMEGA 3 (OTC) [Concomitant]
     Dosage: 360 MG, UNK
  8. DOCETAXEL. [Suspect]
     Active Substance: DOCETAXEL
     Indication: BREAST CANCER METASTATIC
     Dosage: 150 MG, CYCLIC (SEVEN CYCLES, EVERY THREE WEEKS)
     Dates: end: 20140123
  9. DOCETAXEL. [Suspect]
     Active Substance: DOCETAXEL
     Dosage: UNK
     Dates: end: 20140123
  10. HERCEPTIN [Concomitant]
     Active Substance: TRASTUZUMAB
     Indication: CHEMOTHERAPY
     Dosage: UNK
  11. PERJETA [Concomitant]
     Active Substance: PERTUZUMAB
     Indication: CHEMOTHERAPY
     Dosage: UNK
  12. VITAMIN B-12 (OTC) [Concomitant]
     Dosage: 5000 UG, UNK
  13. ALPHA LIPOIC ACID (OTC) [Concomitant]
     Dosage: 200 MG, UNK
  14. GABAPENTIN. [Concomitant]
     Active Substance: GABAPENTIN
     Dosage: 100 MG, UNK
     Dates: end: 20180222
  15. CARBOPLATIN. [Concomitant]
     Active Substance: CARBOPLATIN
     Dosage: UNK
  16. TAXOTERE [Concomitant]
     Active Substance: DOCETAXEL
     Indication: CHEMOTHERAPY
     Dosage: UNK
  17. LIPITOR [Concomitant]
     Active Substance: ATORVASTATIN CALCIUM
     Dosage: 20 MG, UNK
  18. CLONAZEPAM. [Concomitant]
     Active Substance: CLONAZEPAM
     Dosage: 0.5 MG, UNK
     Dates: start: 2007
  19. IRON (OTC) [Concomitant]
     Dosage: 28 MG, UNK
  20. CYCLOPHOSPHAMIDE. [Concomitant]
     Active Substance: CYCLOPHOSPHAMIDE
     Indication: CHEMOTHERAPY
  21. AVASTIN [Concomitant]
     Active Substance: BEVACIZUMAB
     Dosage: UNK
  22. CLOPIDOGREL [Concomitant]
     Active Substance: CLOPIDOGREL BISULFATE
     Dosage: 75 MG, UNK
  23. BIOTIN-KERATIN (OTC) [Concomitant]
     Dosage: 10000 MCG/100 MG
  24. IMODIUM (OTC) [Concomitant]
     Dosage: UNK
  25. TAXOL [Concomitant]
     Active Substance: PACLITAXEL
     Indication: CHEMOTHERAPY
  26. BABY ASPIRIN (OTC) [Concomitant]
     Dosage: 81 MG, UNK

REACTIONS (5)
  - Alopecia [Not Recovered/Not Resolved]
  - Hair colour changes [Not Recovered/Not Resolved]
  - Madarosis [Not Recovered/Not Resolved]
  - Hair texture abnormal [Not Recovered/Not Resolved]
  - Hair disorder [Not Recovered/Not Resolved]

NARRATIVE: CASE EVENT DATE: 200703
